FAERS Safety Report 10227608 (Version 2)
Quarter: 2014Q3

REPORT INFORMATION
  Report Type: Spontaneous
  Country: US (occurrence: None)
  Receive Date: 20140606
  Receipt Date: 20140709
  Transmission Date: 20150326
  Serious: Yes (Hospitalization)
  Sender: FDA-Public Use
  Company Number: UNT-2014-001370

PATIENT
  Age: 61 Year
  Sex: Female
  Weight: 61.7 kg

DRUGS (1)
  1. REMODULIN [Suspect]
     Active Substance: TREPROSTINIL
     Indication: COR PULMONALE CHRONIC
     Route: 041
     Dates: start: 20111206

REACTIONS (2)
  - Back injury [None]
  - Thoracic vertebral fracture [None]
